FAERS Safety Report 19889484 (Version 1)
Quarter: 2021Q3

REPORT INFORMATION
  Report Type: Spontaneous
  Country: US (occurrence: US)
  Receive Date: 20210927
  Receipt Date: 20210927
  Transmission Date: 20211014
  Serious: Yes (Hospitalization)
  Sender: FDA-Public Use
  Company Number: US-UCBSA-2021030832

PATIENT
  Age: 59 Year
  Sex: Female

DRUGS (1)
  1. CIMZIA [Suspect]
     Active Substance: CERTOLIZUMAB PEGOL
     Indication: CROHN^S DISEASE
     Dosage: 400 MILLIGRAM, EV 4 WEEKS
     Route: 058
     Dates: start: 202011

REACTIONS (5)
  - Arthralgia [Unknown]
  - White blood cell count abnormal [Unknown]
  - Pruritus [Unknown]
  - Pyrexia [Unknown]
  - Joint swelling [Unknown]

NARRATIVE: CASE EVENT DATE: 202105
